FAERS Safety Report 17941146 (Version 1)
Quarter: 2020Q2

REPORT INFORMATION
  Report Type: Report from Study
  Country: IT (occurrence: IT)
  Receive Date: 20200625
  Receipt Date: 20200625
  Transmission Date: 20200714
  Serious: Yes (Other)
  Sender: FDA-Public Use
  Company Number: IT-AUROBINDO-AUR-APL-2020-029994

PATIENT
  Age: 61 Year
  Sex: Female

DRUGS (2)
  1. LITHIUM. [Interacting]
     Active Substance: LITHIUM
     Indication: MAJOR DEPRESSION
     Dosage: 900 MILLIGRAM, ONCE A DAY
     Route: 065
  2. LISINOPRIL TABLET [Suspect]
     Active Substance: LISINOPRIL
     Indication: HYPERTENSION
     Dosage: 10 MILLIGRAM, ONCE A DAY
     Route: 048

REACTIONS (2)
  - Acute kidney injury [Unknown]
  - Drug interaction [Unknown]
